FAERS Safety Report 11683553 (Version 1)
Quarter: 2015Q4

REPORT INFORMATION
  Report Type: Spontaneous
  Country: US (occurrence: None)
  Receive Date: 20151029
  Receipt Date: 20151029
  Transmission Date: 20160304
  Serious: No
  Sender: FDA-Public Use
  Company Number: US-MDT-ADR-2015-02047

PATIENT
  Age: 55 Year
  Sex: Female

DRUGS (2)
  1. BACLOFEN INTRATHECAL 150 MG/ML [Suspect]
     Active Substance: BACLOFEN
     Indication: PAIN
     Dosage: 25.50 MG/DAY
  2. MORPHINE INTRATHECAL 20 MG/ML [Suspect]
     Active Substance: MORPHINE
     Dosage: 3.4 MG/DAY

REACTIONS (1)
  - Malaise [None]
